FAERS Safety Report 6415126-0 (Version None)
Quarter: 2009Q4

REPORT INFORMATION
  Report Type: 
  Country: None (occurrence: None)
  Receive Date: 20091027
  Receipt Date: 20091013
  Transmission Date: 20100525
  Serious: Yes (Hospitalization)
  Sender: FDA-Public Use
  Company Number: US-BIOGENIDEC-2009BI028510

PATIENT
  Age: 37 Year
  Sex: Female
  Weight: 117 kg

DRUGS (7)
  1. TYSABRI [Suspect]
     Indication: MULTIPLE SCLEROSIS
     Route: 042
     Dates: start: 20080301
  2. DIOVAN [Concomitant]
     Indication: HYPERTENSION
     Dates: start: 20070101, end: 20090710
  3. NAPROXEN [Concomitant]
     Indication: ARTHRITIS
     Dates: start: 20070101, end: 20090710
  4. NAPROXEN [Concomitant]
     Indication: PAIN
     Dates: start: 20070101, end: 20090710
  5. BIRTH CONTROL PILLS (NOS) [Concomitant]
     Indication: DRUG USE FOR UNKNOWN INDICATION
  6. ZOLOFT [Concomitant]
     Indication: DEPRESSION
  7. DITROPAN [Concomitant]
     Indication: HYPERTONIC BLADDER
     Dates: end: 20090701

REACTIONS (13)
  - ANKLE FRACTURE [None]
  - DYSPNOEA EXERTIONAL [None]
  - FLUID RETENTION [None]
  - HYPERTENSION [None]
  - IRON DEFICIENCY ANAEMIA [None]
  - NEPHROGENIC ANAEMIA [None]
  - NEPHROPATHY TOXIC [None]
  - NEUROGENIC BLADDER [None]
  - OBSTRUCTIVE UROPATHY [None]
  - OEDEMA PERIPHERAL [None]
  - RENAL DISORDER [None]
  - RENAL FAILURE ACUTE [None]
  - URINARY TRACT INFECTION [None]
